FAERS Safety Report 4300288-1 (Version None)
Quarter: 2004Q1

REPORT INFORMATION
  Report Type: 
  Country: None (occurrence: None)
  Receive Date: 20040218
  Receipt Date: 20040204
  Transmission Date: 20041129
  Serious: Yes (Other)
  Sender: FDA-Public Use
  Company Number: US_0402100566

PATIENT
  Age: 43 Year
  Sex: Male
  Weight: 86 kg

DRUGS (1)
  1. HUMULIN 70/30 [Suspect]
     Dosage: 75 U/DAY
     Dates: start: 19940101

REACTIONS (1)
  - DIALYSIS [None]
